FAERS Safety Report 11546042 (Version 1)
Quarter: 2015Q3

REPORT INFORMATION
  Report Type: Spontaneous
  Country: US (occurrence: US)
  Receive Date: 20150924
  Receipt Date: 20150924
  Transmission Date: 20151125
  Serious: No
  Sender: FDA-Public Use
  Company Number: US-JNJFOC-20150911211

PATIENT
  Age: 49 Year
  Sex: Female
  Weight: 54.43 kg

DRUGS (4)
  1. DURAGESIC [Suspect]
     Active Substance: FENTANYL
     Indication: POLYNEUROPATHY
     Route: 062
     Dates: start: 2013
  2. DURAGESIC [Suspect]
     Active Substance: FENTANYL
     Indication: ARNOLD-CHIARI MALFORMATION
     Route: 062
     Dates: start: 2013
  3. METOPROLOL [Concomitant]
     Active Substance: METOPROLOL
     Indication: CARDIAC DISORDER
     Route: 048
     Dates: start: 2013
  4. LYRICA [Concomitant]
     Active Substance: PREGABALIN
     Indication: NEURALGIA
     Route: 048
     Dates: start: 2014

REACTIONS (11)
  - Hyperhidrosis [Unknown]
  - Wrong technique in product usage process [Unknown]
  - Therapeutic response decreased [Unknown]
  - Product quality issue [Unknown]
  - Middle insomnia [Unknown]
  - Inappropriate schedule of drug administration [Unknown]
  - Withdrawal syndrome [Unknown]
  - Neuralgia [Unknown]
  - Nervousness [Unknown]
  - Underdose [Unknown]
  - Product adhesion issue [Unknown]

NARRATIVE: CASE EVENT DATE: 201508
